FAERS Safety Report 13883536 (Version 3)
Quarter: 2017Q3

REPORT INFORMATION
  Report Type: Spontaneous
  Country: BR (occurrence: BR)
  Receive Date: 20170819
  Receipt Date: 20170915
  Transmission Date: 20171127
  Serious: Yes (Other)
  Sender: FDA-Public Use
  Company Number: BR-ROCHE-1977408

PATIENT
  Age: 63 Year
  Sex: Male

DRUGS (1)
  1. RIVOTRIL [Suspect]
     Active Substance: CLONAZEPAM
     Indication: PRODUCT USED FOR UNKNOWN INDICATION
     Route: 065

REACTIONS (5)
  - Sedation [Unknown]
  - Product dropper issue [Unknown]
  - Incorrect dose administered [Unknown]
  - Accidental overdose [Unknown]
  - Wrong technique in product usage process [Unknown]
